FAERS Safety Report 8420278-7 (Version None)
Quarter: 2012Q2

REPORT INFORMATION
  Report Type: 
  Country: None (occurrence: None)
  Receive Date: 20120607
  Receipt Date: 20120524
  Transmission Date: 20120825
  Serious: Yes (Hospitalization, Other)
  Sender: FDA-Public Use
  Company Number: US-MYLANLABS-2009AC000443

PATIENT
  Age: 74 Year
  Sex: Male
  Weight: 125.19 kg

DRUGS (48)
  1. CARVEDILOL [Concomitant]
  2. NEXIUM [Concomitant]
  3. CIPROFLOXACIN [Concomitant]
  4. MINITRAN [Concomitant]
  5. PROCARDIA /00340701/ [Concomitant]
  6. CARISOPRODOL [Concomitant]
  7. ZAROXOLYN [Concomitant]
  8. LOTREL [Concomitant]
  9. SPIRONOLACTONE [Concomitant]
  10. LOTENSIN [Concomitant]
     Dosage: 10/20MG QD
  11. LORCET-HD [Concomitant]
     Dosage: 10/20MG QD
  12. DILAUDID [Concomitant]
  13. DIOVAN [Concomitant]
  14. OMEGA /00661202/ [Concomitant]
  15. LORAZEPAM [Concomitant]
  16. PERCOCET [Concomitant]
     Dosage: 5 TABLETS
  17. ALTACE [Concomitant]
  18. OXYCODONE HCL [Concomitant]
  19. SORINE [Concomitant]
  20. NIFEDIPINE [Concomitant]
  21. CARDIZEM [Concomitant]
  22. LEVAQUIN [Concomitant]
     Dosage: FOR ANOTHER 5 DAYS
  23. POTASSIUM [Concomitant]
  24. VESICARE [Concomitant]
     Route: 048
  25. XANAX [Concomitant]
  26. LASIX [Concomitant]
  27. FUROSEMIDE [Concomitant]
  28. COREG [Concomitant]
  29. CYCLOBENZAPRINE [Concomitant]
  30. OXYCONTIN [Concomitant]
  31. TOPROL-XL [Concomitant]
  32. MAGNESIUM [Concomitant]
  33. COLCHICINE [Concomitant]
  34. FLOMAX [Concomitant]
  35. DILTIAZEM [Concomitant]
  36. POTASSIUM CHLORIDE [Concomitant]
  37. SOTALOL [Concomitant]
  38. HEPARIN SODIUM [Concomitant]
     Dosage: UNITS/ML
  39. CALCIUM [Concomitant]
  40. AMIODARONE HCL [Concomitant]
  41. COUMADIN [Concomitant]
  42. RAMIPRIL [Concomitant]
  43. ASPIRIN [Concomitant]
  44. KLOR-CON [Concomitant]
  45. TENORMIN [Concomitant]
  46. DIGOXIN [Suspect]
     Indication: PRODUCT USED FOR UNKNOWN INDICATION
     Route: 048
     Dates: start: 20060620, end: 20080616
  47. ATENOLOL [Concomitant]
  48. JANTOVEN [Concomitant]

REACTIONS (66)
  - ATRIAL FIBRILLATION [None]
  - HYPOTENSION [None]
  - PLEURAL EFFUSION [None]
  - ANXIETY [None]
  - CARDIOMEGALY [None]
  - DEVICE LEAD DAMAGE [None]
  - HEART RATE IRREGULAR [None]
  - RENAL FAILURE [None]
  - INJURY [None]
  - CORONARY ARTERY DISEASE [None]
  - FATIGUE [None]
  - TACHYPNOEA [None]
  - DIZZINESS [None]
  - ECONOMIC PROBLEM [None]
  - CARDIOMYOPATHY [None]
  - PALPITATIONS [None]
  - ATRIAL FLUTTER [None]
  - PULMONARY HYPERTENSION [None]
  - ARTHRALGIA [None]
  - CARDIOVERSION [None]
  - CARDIAC PACEMAKER INSERTION [None]
  - CONSTIPATION [None]
  - ECHOCARDIOGRAM ABNORMAL [None]
  - GALLOP RHYTHM PRESENT [None]
  - ORTHOPNOEA [None]
  - PAIN IN EXTREMITY [None]
  - RENAL CYST [None]
  - OBESITY [None]
  - BUNDLE BRANCH BLOCK LEFT [None]
  - EXTRASYSTOLES [None]
  - GYNAECOMASTIA [None]
  - HYPERHIDROSIS [None]
  - OBSTRUCTIVE UROPATHY [None]
  - TACHYCARDIA [None]
  - HEART RATE DECREASED [None]
  - TOXICITY TO VARIOUS AGENTS [None]
  - IMPLANTABLE DEFIBRILLATOR INSERTION [None]
  - LEFT VENTRICULAR HYPERTROPHY [None]
  - HYPOXIA [None]
  - TREATMENT NONCOMPLIANCE [None]
  - LOSS OF CONSCIOUSNESS [None]
  - ILL-DEFINED DISORDER [None]
  - OEDEMA [None]
  - CHRONIC OBSTRUCTIVE PULMONARY DISEASE [None]
  - CARDIAC FAILURE CONGESTIVE [None]
  - EMPHYSEMA [None]
  - ATRIOVENTRICULAR BLOCK FIRST DEGREE [None]
  - DRUG WITHDRAWAL SYNDROME [None]
  - POLLAKIURIA [None]
  - HYPERTENSION [None]
  - CHEST X-RAY ABNORMAL [None]
  - EXOSTOSIS [None]
  - FLANK PAIN [None]
  - SPINAL OSTEOARTHRITIS [None]
  - CARDIAC FAILURE [None]
  - DYSPNOEA [None]
  - MITRAL VALVE INCOMPETENCE [None]
  - BACK PAIN [None]
  - BREATH SOUNDS ABNORMAL [None]
  - BRONCHITIS [None]
  - CHEST DISCOMFORT [None]
  - COUGH [None]
  - FLUID OVERLOAD [None]
  - OXYGEN SATURATION DECREASED [None]
  - PRODUCTIVE COUGH [None]
  - VENTRICULAR EXTRASYSTOLES [None]
